FAERS Safety Report 19786199 (Version 2)
Quarter: 2022Q3

REPORT INFORMATION
  Report Type: Spontaneous
  Country: SI (occurrence: SI)
  Receive Date: 20210903
  Receipt Date: 20220801
  Transmission Date: 20221026
  Serious: Yes (Hospitalization)
  Sender: FDA-Public Use
  Company Number: SI-MYLANLABS-2021M1058367

PATIENT
  Age: 46 Year
  Sex: Female

DRUGS (19)
  1. PANTOPRAZOLE [Suspect]
     Active Substance: PANTOPRAZOLE
     Indication: Stevens-Johnson syndrome
     Dosage: 40 MILLIGRAM, QD
     Route: 042
     Dates: start: 202008
  2. METHYLPREDNISOLONE [Suspect]
     Active Substance: METHYLPREDNISOLONE
     Indication: Stevens-Johnson syndrome
     Dosage: 40 MILLIGRAM, QD
     Route: 042
     Dates: start: 202008
  3. BETAMETHASONE [Suspect]
     Active Substance: BETAMETHASONE
     Indication: Skin lesion
     Dosage: LOTION
     Route: 061
  4. BETAMETHASONE\GENTAMICIN [Suspect]
     Active Substance: BETAMETHASONE\GENTAMICIN
     Indication: Skin lesion
     Dosage: LOTION
     Route: 061
  5. TRIAMCINOLONE [Suspect]
     Active Substance: TRIAMCINOLONE
     Indication: Stevens-Johnson syndrome
     Dosage: UNK
     Route: 061
  6. CHLORAMPHENICOL [Suspect]
     Active Substance: CHLORAMPHENICOL
     Indication: Rash
     Dosage: UNK
     Route: 047
     Dates: start: 202008
  7. DEXAMETHASONE SODIUM PHOSPHATE\NEOMYCIN SULFATE\POLYMYXIN B SULFATE [Suspect]
     Active Substance: DEXAMETHASONE SODIUM PHOSPHATE\NEOMYCIN SULFATE\POLYMYXIN B SULFATE
     Indication: Skin lesion
     Dosage: UNK
     Route: 047
     Dates: start: 202008
  8. FUSIDATE SODIUM [Suspect]
     Active Substance: FUSIDATE SODIUM
     Indication: Skin lesion
     Dosage: UNK
     Route: 065
     Dates: start: 202008
  9. MORPHINE [Suspect]
     Active Substance: MORPHINE
     Indication: Analgesic therapy
     Dosage: 80 MILLIGRAM
     Route: 065
     Dates: start: 202008
  10. PRILOCAINE [Suspect]
     Active Substance: PRILOCAINE
     Indication: Analgesic therapy
     Dosage: 50 MILLIGRAM
     Route: 065
     Dates: start: 202008
  11. LIDOCAINE [Suspect]
     Active Substance: LIDOCAINE
     Indication: Analgesic therapy
     Dosage: UNK
     Route: 065
     Dates: start: 202008
  12. SALINE [Suspect]
     Active Substance: SODIUM CHLORIDE
     Indication: Parenteral nutrition
     Dosage: 1000 MILLILITER
     Route: 065
  13. ONDANSETRON [Concomitant]
     Active Substance: ONDANSETRON
     Indication: Abdominal pain
     Dosage: UNK
     Route: 065
     Dates: start: 202008
  14. AMOXICILLIN\CLAVULANATE POTASSIUM [Concomitant]
     Active Substance: AMOXICILLIN\CLAVULANATE POTASSIUM
     Indication: Pharyngitis
     Dosage: 1.2 GRAM, TID, THREE TIMES DAILY
     Route: 042
     Dates: start: 202008
  15. ESKETAMINE [Concomitant]
     Active Substance: ESKETAMINE
     Indication: Abdominal pain
     Dosage: ELASTOMERIC PUMP
     Route: 065
     Dates: start: 202008
  16. DEXAMETHASONE [Concomitant]
     Active Substance: DEXAMETHASONE
     Indication: Abdominal pain
     Dosage: ELASTOMERIC PUMP
     Route: 065
     Dates: start: 202008
  17. Xylocain [Concomitant]
     Indication: Abdominal pain
     Dosage: ELASTOMERIC PUMP
     Route: 065
     Dates: start: 202008
  18. MOXIFLOXACIN [Concomitant]
     Active Substance: MOXIFLOXACIN
     Indication: Pneumonia mycoplasmal
     Dosage: 400 MILLIGRAM, QD
     Route: 042
     Dates: start: 202008
  19. FLUCLOXACILLIN [Concomitant]
     Active Substance: FLUCLOXACILLIN
     Indication: Pneumonia mycoplasmal
     Dosage: 2 GRAM, QID
     Route: 042
     Dates: start: 202008

REACTIONS (2)
  - Drug ineffective for unapproved indication [Unknown]
  - Off label use [Unknown]

NARRATIVE: CASE EVENT DATE: 20200801
